FAERS Safety Report 4829580-9 (Version None)
Quarter: 2005Q4

REPORT INFORMATION
  Report Type: 
  Country: None (occurrence: None)
  Receive Date: 20051116
  Receipt Date: 20051101
  Transmission Date: 20060501
  Serious: Yes (Hospitalization, Other)
  Sender: FDA-Public Use
  Company Number: US-AMGEN-US156414

PATIENT
  Sex: Female

DRUGS (1)
  1. ENBREL [Suspect]
     Indication: RHEUMATOID ARTHRITIS
     Dates: start: 20050401, end: 20051001

REACTIONS (5)
  - NEUTROPHIL COUNT DECREASED [None]
  - PYREXIA [None]
  - SPUTUM DISCOLOURED [None]
  - SYNOVECTOMY [None]
  - WHITE BLOOD CELL COUNT DECREASED [None]
